FAERS Safety Report 15274170 (Version 5)
Quarter: 2019Q2

REPORT INFORMATION
  Report Type: Report from Study
  Country: CN (occurrence: CN)
  Receive Date: 20180814
  Receipt Date: 20190606
  Transmission Date: 20190711
  Serious: Yes (Death, Hospitalization)
  Sender: FDA-Public Use
  Company Number: CN-ROCHE-2168507

PATIENT
  Age: 59 Year
  Sex: Male
  Weight: 68 kg

DRUGS (51)
  1. TROPISETRON HYDROCHLORIDE [Concomitant]
     Active Substance: TROPISETRON HYDROCHLORIDE
     Route: 065
     Dates: start: 20180629, end: 20180630
  2. PANTOPRAZOLE SODIUM. [Concomitant]
     Active Substance: PANTOPRAZOLE SODIUM
     Route: 065
     Dates: start: 20180629, end: 20180630
  3. COMPOUND METHOXYPHENAMINE [Concomitant]
     Indication: COUGH
     Route: 065
     Dates: start: 20180629, end: 20180804
  4. INSULIN DETEMIR [Concomitant]
     Active Substance: INSULIN DETEMIR
     Route: 065
     Dates: start: 20180510, end: 20180804
  5. PULMICORT TURBUHALER [Concomitant]
     Active Substance: BUDESONIDE
     Dosage: PULMICORT RESPULES
     Route: 065
     Dates: start: 20180802, end: 20180804
  6. LIDOCAINE HYDROCHLORIDE. [Concomitant]
     Active Substance: LIDOCAINE HYDROCHLORIDE
     Indication: LOCAL ANAESTHESIA
     Route: 065
     Dates: start: 20180802, end: 20180803
  7. PULMICORT TURBUHALER [Concomitant]
     Active Substance: BUDESONIDE
     Indication: WHEEZING
     Dosage: PULMICORT RESPULES
     Route: 065
     Dates: start: 20180802, end: 20180804
  8. PANTOPRAZOLE SODIUM. [Concomitant]
     Active Substance: PANTOPRAZOLE SODIUM
     Route: 065
     Dates: start: 20180720, end: 20180722
  9. AMBROXOL HYDROCHLORIDE [Concomitant]
     Active Substance: AMBROXOL HYDROCHLORIDE
     Route: 065
     Dates: start: 20180801, end: 20180801
  10. ADRENALINE HYDROCHLORIDE [Concomitant]
     Active Substance: EPINEPHRINE HYDROCHLORIDE
     Route: 065
     Dates: start: 20180804, end: 20180804
  11. ACETAMINOPHEN. [Concomitant]
     Active Substance: ACETAMINOPHEN
     Indication: PAIN
     Route: 065
     Dates: start: 20180419, end: 20180804
  12. SODIUM ACETATE. [Concomitant]
     Active Substance: SODIUM ACETATE
     Route: 065
     Dates: start: 20180802, end: 20180803
  13. SODIUM CHLORIDE. [Concomitant]
     Active Substance: SODIUM CHLORIDE
     Route: 065
     Dates: start: 20180629, end: 20180629
  14. INSULIN DETEMIR [Concomitant]
     Active Substance: INSULIN DETEMIR
     Route: 065
     Dates: start: 20180630, end: 20180804
  15. CEFOPERAZONE SODIUM;SULBACTAM SODIUM [Concomitant]
     Route: 065
     Dates: start: 20180802, end: 20180803
  16. SUFENTANIL CITRATE. [Concomitant]
     Active Substance: SUFENTANIL CITRATE
     Indication: ANALGESIC THERAPY
     Route: 065
     Dates: start: 20180801, end: 20180804
  17. MOXIFLOXACIN HYDROCHLORIDE. [Concomitant]
     Active Substance: MOXIFLOXACIN HYDROCHLORIDE
     Route: 065
     Dates: start: 20180801, end: 20180801
  18. INSULIN [Concomitant]
     Active Substance: INSULIN NOS
     Route: 065
     Dates: start: 20180801, end: 20180802
  19. DOBUTAMINE HYDROCHLORIDE. [Concomitant]
     Active Substance: DOBUTAMINE HYDROCHLORIDE
     Indication: BLOOD PRESSURE INCREASED
     Route: 065
     Dates: start: 20180804, end: 20180804
  20. ISOPRENALINE HYDROCHLORIDE [Concomitant]
     Active Substance: ISOPROTERENOL HYDROCHLORIDE
     Route: 065
     Dates: start: 20180804, end: 20180804
  21. SUCCINYLATED GELATIN [Concomitant]
     Active Substance: SUCCINYLATED GELATIN
     Route: 065
     Dates: start: 20180803, end: 20180803
  22. ATEZOLIZUMAB. [Suspect]
     Active Substance: ATEZOLIZUMAB
     Indication: NON-SMALL CELL LUNG CANCER STAGE IV
     Dosage: ON 20/JUL/2018, HE RECEIVED THE MOST RECENT DOSE OF ATEZOLIZUMAB PRIOR TO EVENT ONSET.
     Route: 042
     Dates: start: 20180428
  23. CEFAMANDOLE NAFATE [Concomitant]
     Active Substance: CEFAMANDOLE NAFATE
     Route: 065
     Dates: start: 20180801, end: 20180801
  24. DOPAMINE HYDROCHLORIDE. [Concomitant]
     Active Substance: DOPAMINE HYDROCHLORIDE
     Indication: BLOOD PRESSURE INCREASED
     Route: 065
     Dates: start: 20180803, end: 20180804
  25. LINEZOLID. [Concomitant]
     Active Substance: LINEZOLID
     Route: 065
     Dates: start: 20180802, end: 20180804
  26. CODEINE PHOSPHATE [Concomitant]
     Active Substance: CODEINE PHOSPHATE
     Indication: COUGH
     Route: 065
     Dates: start: 20180408, end: 20180804
  27. PEMETREXED. [Suspect]
     Active Substance: PEMETREXED
     Indication: NON-SMALL CELL LUNG CANCER STAGE IV
     Dosage: ON 29/JUN/2018, HE RECEIVED THE MOST RECENT DOSE OF PEMETREXED (930MG) PRIOR TO EVENT ONSET.
     Route: 042
     Dates: start: 20180428
  28. CISPLATIN. [Suspect]
     Active Substance: CISPLATIN
     Indication: NON-SMALL CELL LUNG CANCER STAGE IV
     Dosage: ON 29/JUN/2018, HE RECEIVED THE MOST RECENT DOSE OF CISPLATIN (120MG) PRIOR TO EVENT ONSET.
     Route: 042
     Dates: start: 20180428
  29. PANTOPRAZOLE SODIUM. [Concomitant]
     Active Substance: PANTOPRAZOLE SODIUM
     Route: 065
     Dates: start: 20180801, end: 20180804
  30. IMIPENEM AND CILASTATIN SODIUM [Concomitant]
     Active Substance: CILASTATIN SODIUM\IMIPENEM
     Route: 065
     Dates: start: 20180803, end: 20180804
  31. MIDAZOLAM [Concomitant]
     Active Substance: MIDAZOLAM HYDROCHLORIDE
     Route: 065
     Dates: start: 20180801, end: 20180803
  32. FUROSEMIDE. [Concomitant]
     Active Substance: FUROSEMIDE
     Indication: POLYURIA
     Route: 065
     Dates: start: 20180802, end: 20180803
  33. INSULIN ASPART [Concomitant]
     Active Substance: INSULIN ASPART
     Route: 065
     Dates: start: 20180508, end: 20180804
  34. RINGERS SOLUTION [Concomitant]
     Active Substance: CALCIUM CHLORIDE\POTASSIUM CHLORIDE\SODIUM CHLORIDE
     Route: 065
     Dates: start: 20180802, end: 20180803
  35. DEXMEDETOMIDINE HYDROCHLORIDE. [Concomitant]
     Active Substance: DEXMEDETOMIDINE HYDROCHLORIDE
     Route: 065
     Dates: start: 20180801, end: 20180802
  36. FENTANYL CITRATE. [Concomitant]
     Active Substance: FENTANYL CITRATE
     Indication: ANALGESIC THERAPY
     Route: 065
     Dates: start: 20180801, end: 20180801
  37. SODIUM BICARBONATE. [Concomitant]
     Active Substance: SODIUM BICARBONATE
     Route: 065
     Dates: start: 20180803, end: 20180803
  38. IPRATROPIUM BROMIDE. [Concomitant]
     Active Substance: IPRATROPIUM BROMIDE
     Dosage: METERED DOSE INHALER
     Route: 065
     Dates: start: 20180802, end: 20180804
  39. OXYCODONE [Concomitant]
     Active Substance: OXYCODONE
     Indication: PAIN
     Route: 065
     Dates: start: 20180419, end: 20180804
  40. SODIUM ACETATE. [Concomitant]
     Active Substance: SODIUM ACETATE
     Route: 065
     Dates: start: 20180720, end: 20180720
  41. TROPISETRON HYDROCHLORIDE [Concomitant]
     Active Substance: TROPISETRON HYDROCHLORIDE
     Route: 065
     Dates: start: 20180720, end: 20180722
  42. RINGERS SOLUTION [Concomitant]
     Active Substance: CALCIUM CHLORIDE\POTASSIUM CHLORIDE\SODIUM CHLORIDE
     Route: 065
     Dates: start: 20180629, end: 20180629
  43. DOXOFYLLINE [Concomitant]
     Active Substance: DOXOFYLLINE
     Route: 065
     Dates: start: 20180702, end: 20180804
  44. DOXOFYLLINE [Concomitant]
     Active Substance: DOXOFYLLINE
     Route: 065
     Dates: start: 20180720, end: 20180722
  45. NOREPINEPHRINE BITARTRATE. [Concomitant]
     Active Substance: NOREPINEPHRINE BITARTRATE
     Indication: BLOOD PRESSURE INCREASED
     Route: 065
     Dates: start: 20180803, end: 20180804
  46. HEPARIN SODIUM. [Concomitant]
     Active Substance: HEPARIN SODIUM
     Route: 065
     Dates: start: 20180803, end: 20180803
  47. TANNIC ACID [Concomitant]
     Active Substance: TANNIC ACID
     Indication: PHLEBITIS
     Route: 065
     Dates: start: 20180416, end: 20180804
  48. INSULIN ASPART [Concomitant]
     Active Substance: INSULIN ASPART
     Route: 065
     Dates: start: 20180630, end: 20180804
  49. THYMOPENTIN [Concomitant]
     Active Substance: THYMOPENTIN
     Route: 065
     Dates: start: 20180802, end: 20180804
  50. METHYLPREDNISOLONE SODIUM SUCCINATE. [Concomitant]
     Active Substance: METHYLPREDNISOLONE SODIUM SUCCINATE
     Route: 065
     Dates: start: 20180801, end: 20180804
  51. SODIUM ACETATE. [Concomitant]
     Active Substance: SODIUM ACETATE
     Dosage: RINGER^S INJECTION?REPLENISH LIQUIDS
     Route: 065
     Dates: start: 20180629, end: 20180630

REACTIONS (1)
  - Lung infection [Fatal]

NARRATIVE: CASE EVENT DATE: 20180726
